FAERS Safety Report 8274584 (Version 3)
Quarter: 2012Q4

REPORT INFORMATION
  Report Type: 
  Country: US (occurrence: US)
  Receive Date: 20111205
  Receipt Date: 20121010
  Transmission Date: 20130627
  Serious: Yes (Other)
  Sender: FDA-Public Use
  Company Number: PHEH2011US010313

PATIENT
  Sex: Female

DRUGS (11)
  1. AREDIA [Suspect]
     Indication: METASTASES TO BONE
     Dosage: 90 mg, UNK
     Route: 042
  2. DARVOCET-N [Concomitant]
  3. DULCOLAX [Concomitant]
  4. SECONAL [Concomitant]
  5. ANCEF [Concomitant]
  6. KEFLEX [Concomitant]
  7. ZOFRAN [Concomitant]
  8. TAMOXIFEN [Concomitant]
  9. OXYCODONE [Concomitant]
  10. ACETAMINOPHEN [Concomitant]
  11. FEMARA [Concomitant]

REACTIONS (9)
  - Pelvic inflammatory disease [Unknown]
  - Ovarian cyst [Unknown]
  - Tubo-ovarian abscess [Unknown]
  - Abdominal pain lower [Unknown]
  - Gastroenteritis [Unknown]
  - Leukocytosis [Unknown]
  - Bursitis [Unknown]
  - Contusion [Unknown]
  - Gait disturbance [Unknown]
